FAERS Safety Report 4470183-6 (Version None)
Quarter: 2004Q3

REPORT INFORMATION
  Report Type: 
  Country: None (occurrence: None)
  Receive Date: 20040910
  Receipt Date: 20040712
  Transmission Date: 20050211
  Serious: No
  Sender: FDA-Public Use
  Company Number: 2004-00194

PATIENT
  Age: 74 Year
  Sex: Male
  Weight: 97.1 kg

DRUGS (1)
  1. VELCADE [Suspect]
     Indication: MULTIPLE MYELOMA
     Dosage: INTRAVENOUS
     Route: 042
     Dates: start: 20040628

REACTIONS (1)
  - RASH [None]
